FAERS Safety Report 4595059-5 (Version None)
Quarter: 2005Q1

REPORT INFORMATION
  Report Type: 
  Country: None (occurrence: None)
  Receive Date: 20050223
  Receipt Date: 20050210
  Transmission Date: 20050727
  Serious: Yes (Hospitalization, Other)
  Sender: FDA-Public Use
  Company Number: 2005027347

PATIENT
  Age: 65 Year
  Sex: Female

DRUGS (1)
  1. GEODON [Suspect]
     Indication: DELUSION
     Dosage: 140 MG (2 IN 1 D)

REACTIONS (6)
  - CARDIAC STRESS TEST ABNORMAL [None]
  - CORONARY ARTERY OCCLUSION [None]
  - ELECTROCARDIOGRAM QT PROLONGED [None]
  - MONOPLEGIA [None]
  - TORSADE DE POINTES [None]
  - TROPONIN INCREASED [None]
